FAERS Safety Report 6133509-3 (Version None)
Quarter: 2009Q1

REPORT INFORMATION
  Report Type: 
  Country: None (occurrence: None)
  Receive Date: 20090326
  Receipt Date: 20081224
  Transmission Date: 20090719
  Serious: Yes (Hospitalization)
  Sender: FDA-Public Use
  Company Number: UA-PFIZER INC-2008159291

PATIENT

DRUGS (13)
  1. BLINDED THERAPY [Suspect]
     Indication: PROPHYLAXIS
     Dosage: BLINDED
     Route: 048
     Dates: start: 20060511
  2. ASAPHEN [Concomitant]
     Indication: CORONARY ARTERY DISEASE
     Dosage: 80 MG, 1X/DAY
     Route: 048
     Dates: start: 20060302
  3. ASAPHEN [Concomitant]
     Indication: MYOCARDIAL FIBROSIS
  4. ASAPHEN [Concomitant]
     Indication: THROMBOSIS PROPHYLAXIS
  5. CARVEDILOL [Concomitant]
     Indication: HYPERTENSION
     Dosage: 25 MG, 1X/DAY
     Route: 048
     Dates: start: 20060304, end: 20060607
  6. CARVEDILOL [Concomitant]
     Indication: SINUS TACHYCARDIA
     Dosage: 25 MG, 2X/DAY
     Route: 048
     Dates: start: 20060608
  7. GLUCOPHAGE [Concomitant]
     Indication: TYPE 2 DIABETES MELLITUS
     Dosage: 1000 MG, 2X/DAY
     Route: 048
     Dates: start: 20070512
  8. ATORVASTATIN [Concomitant]
     Indication: HYPERTRIGLYCERIDAEMIA
     Dosage: 10 MG, 1X/DAY
     Route: 048
     Dates: start: 20061118, end: 20070511
  9. ATORVASTATIN [Concomitant]
     Indication: DYSLIPIDAEMIA
     Dosage: 20 MG, 1X/DAY
     Route: 048
     Dates: start: 20070512
  10. ATORVASTATIN [Concomitant]
     Indication: HYPERCHOLESTEROLAEMIA
  11. PIOGLITAZONE [Concomitant]
     Indication: TYPE 2 DIABETES MELLITUS
     Dosage: 15 MG, 1X/DAY
     Route: 048
     Dates: start: 20070512, end: 20081208
  12. GLIBETIC [Concomitant]
     Indication: TYPE 2 DIABETES MELLITUS
     Dosage: 6 MG, 1X/DAY
     Route: 048
     Dates: start: 20080130, end: 20081208
  13. AMLODIPINE BESILATE [Concomitant]
     Indication: HYPERTENSION
     Dosage: 10 MG, 1X/DAY
     Route: 048
     Dates: start: 20080801

REACTIONS (1)
  - GLYCOSYLATED HAEMOGLOBIN INCREASED [None]
